FAERS Safety Report 11888669 (Version 1)
Quarter: 2016Q1

REPORT INFORMATION
  Report Type: Spontaneous
  Country: US (occurrence: None)
  Receive Date: 20160104
  Receipt Date: 20160104
  Transmission Date: 20160526
  Serious: Yes (Life-Threatening)
  Sender: FDA-Public Use
  Company Number: None

PATIENT
  Age: 70 Year
  Sex: Male

DRUGS (2)
  1. RIVAROXABAN [Suspect]
     Active Substance: RIVAROXABAN
     Indication: DEEP VEIN THROMBOSIS
     Dates: start: 20151019, end: 20151119
  2. SULFAMETHOXAZOLE/TRIMETHOPRIM [Suspect]
     Active Substance: SULFAMETHOXAZOLE\TRIMETHOPRIM
     Route: 048
     Dates: start: 20151023, end: 20151119

REACTIONS (3)
  - Haemorrhage [None]
  - Blood creatinine increased [None]
  - Blood urea increased [None]

NARRATIVE: CASE EVENT DATE: 20151119
